FAERS Safety Report 21973718 (Version 2)
Quarter: 2023Q2

REPORT INFORMATION
  Report Type: Report from Study
  Country: US (occurrence: US)
  Receive Date: 20230209
  Receipt Date: 20230414
  Transmission Date: 20230722
  Serious: No
  Sender: FDA-Public Use
  Company Number: US-AMGEN-USASL2022223627

PATIENT
  Age: 59 Year
  Sex: Female

DRUGS (6)
  1. ENBREL [Suspect]
     Active Substance: ETANERCEPT
     Indication: Rheumatoid arthritis
     Dosage: 50 MILLIGRAM, QWK
     Route: 065
  2. ENBREL [Suspect]
     Active Substance: ETANERCEPT
     Dosage: 50 MILLIGRAM, QWK
     Route: 065
  3. LORATADINE [Concomitant]
     Active Substance: LORATADINE
     Dosage: 10 MILLIGRAM
  4. PSEUDOEPHEDRINE SULFATE [Concomitant]
     Active Substance: PSEUDOEPHEDRINE SULFATE
     Dosage: 120 MILLIGRAM
  5. MELOXICAM [Concomitant]
     Active Substance: MELOXICAM
     Dosage: 7.5 MILLIGRAM
  6. BENADRYL [Concomitant]
     Active Substance: DIPHENHYDRAMINE HYDROCHLORIDE
     Dosage: 25 MILLIGRAM

REACTIONS (13)
  - Pain in extremity [Unknown]
  - Exostosis [Unknown]
  - Inflammation [Unknown]
  - Blister [Unknown]
  - Drug ineffective [Unknown]
  - Diarrhoea [Recovered/Resolved]
  - Osteoporosis [Unknown]
  - Vitreous floaters [Not Recovered/Not Resolved]
  - Dyspnoea [Unknown]
  - Weight decreased [Unknown]
  - Photophobia [Unknown]
  - Bone pain [Unknown]
  - Unevaluable event [Unknown]
